FAERS Safety Report 19503236 (Version 1)
Quarter: 2021Q3

REPORT INFORMATION
  Report Type: Spontaneous
  Country: US (occurrence: US)
  Receive Date: 20210707
  Receipt Date: 20210707
  Transmission Date: 20211014
  Serious: No
  Sender: FDA-Public Use
  Company Number: US-ROCHE-2624269

PATIENT
  Sex: Male
  Weight: 59 kg

DRUGS (11)
  1. INSULIN [Concomitant]
     Active Substance: INSULIN NOS
  2. LEVEMIR [Concomitant]
     Active Substance: INSULIN DETEMIR
  3. PROGRAF [Suspect]
     Active Substance: TACROLIMUS
     Indication: LIVER TRANSPLANT
     Route: 048
  4. PROMETHAZINE [Concomitant]
     Active Substance: PROMETHAZINE HYDROCHLORIDE
  5. ASPIRIN. [Concomitant]
     Active Substance: ASPIRIN
  6. PRILOSEC [Concomitant]
     Active Substance: OMEPRAZOLE MAGNESIUM
  7. SIMVASTATIN. [Concomitant]
     Active Substance: SIMVASTATIN
  8. LORATADINE. [Concomitant]
     Active Substance: LORATADINE
  9. NORVASC [Concomitant]
     Active Substance: AMLODIPINE BESYLATE
  10. CELLCEPT [Suspect]
     Active Substance: MYCOPHENOLATE MOFETIL\MYCOPHENOLATE MOFETIL HYDROCHLORIDE
     Indication: PRODUCT USED FOR UNKNOWN INDICATION
     Route: 048
  11. INSULIN LISPRO [Concomitant]
     Active Substance: INSULIN LISPRO

REACTIONS (4)
  - Mental disorder [Recovering/Resolving]
  - Inability to afford medication [Unknown]
  - Expired product administered [Unknown]
  - Tremor [Not Recovered/Not Resolved]
